FAERS Safety Report 12302601 (Version 1)
Quarter: 2016Q2

REPORT INFORMATION
  Report Type: Spontaneous
  Country: US (occurrence: US)
  Receive Date: 20160425
  Receipt Date: 20160425
  Transmission Date: 20160815
  Serious: No
  Sender: FDA-Public Use
  Company Number: US-SA-2015SA133414

PATIENT

DRUGS (1)
  1. LOVENOX [Suspect]
     Active Substance: ENOXAPARIN SODIUM
     Indication: ATRIAL FIBRILLATION
     Route: 065

REACTIONS (2)
  - Fluid overload [Unknown]
  - Oedema [Unknown]
